FAERS Safety Report 17550354 (Version 2)
Quarter: 2020Q3

REPORT INFORMATION
  Report Type: Report from Study
  Country: PL (occurrence: PL)
  Receive Date: 20200317
  Receipt Date: 20200715
  Transmission Date: 20201102
  Serious: Yes (Other)
  Sender: FDA-Public Use
  Company Number: PL-PFIZER INC-2020109917

PATIENT
  Age: 58 Year
  Sex: Female

DRUGS (6)
  1. SERTINDOLE [Interacting]
     Active Substance: SERTINDOLE
     Dosage: UNK
  2. IVABRADINE [Concomitant]
     Active Substance: IVABRADINE
     Dosage: UNK
  3. RAMIPRIL. [Concomitant]
     Active Substance: RAMIPRIL
     Dosage: UNK
  4. TRIMETAZIDINE [Concomitant]
     Active Substance: TRIMETAZIDINE
     Dosage: UNK
  5. ASPIRINE [Concomitant]
     Active Substance: ASPIRIN
     Dosage: UNK
  6. DILTIAZEM HCL [Suspect]
     Active Substance: DILTIAZEM HYDROCHLORIDE
     Dosage: UNK

REACTIONS (2)
  - Ventricular arrhythmia [Unknown]
  - Drug interaction [Unknown]
